FAERS Safety Report 4749756-9 (Version None)
Quarter: 2005Q3

REPORT INFORMATION
  Report Type: 
  Country: None (occurrence: None)
  Receive Date: 20050819
  Receipt Date: 20050819
  Transmission Date: 20060218
  Serious: Yes (Hospitalization)
  Sender: FDA-Public Use
  Company Number: None

PATIENT
  Age: 63 Year
  Sex: Male

DRUGS (2)
  1. ARSENIC TRIOXIDE 0.25MG/KG CTI [Suspect]
     Indication: MULTIPLE MYELOMA
     Dosage: 16.5 MG BIW IV
     Route: 042
     Dates: start: 20050531, end: 20050803
  2. ASCORBIC ACID 1G [Suspect]
     Indication: MULTIPLE MYELOMA
     Dosage: 1G BIW IV
     Route: 042
     Dates: start: 20050531, end: 20050803

REACTIONS (1)
  - PAIN [None]
